FAERS Safety Report 5967485-0 (Version None)
Quarter: 2008Q4

REPORT INFORMATION
  Report Type: 
  Country: None (occurrence: None)
  Receive Date: 20081125
  Receipt Date: 20081113
  Transmission Date: 20090506
  Serious: Yes (Death)
  Sender: FDA-Public Use
  Company Number: JP-PFIZER INC-2008034695

PATIENT
  Sex: Male

DRUGS (12)
  1. ZYVOX [Suspect]
     Indication: PNEUMONIA
     Route: 042
     Dates: start: 20080328, end: 20080404
  2. HABEKACIN [Concomitant]
     Dates: end: 20080301
  3. FULCALIQ [Concomitant]
     Dates: start: 20080307, end: 20080409
  4. ALL OTHER THERAPEUTIC PRODUCTS [Concomitant]
     Dates: start: 20080307, end: 20080409
  5. NOVOLIN R [Concomitant]
     Dates: start: 20080307, end: 20080409
  6. DOPAMINE HYDROCHLORIDE [Concomitant]
     Dates: start: 20080222, end: 20080409
  7. LASIX [Concomitant]
     Dates: start: 20080229, end: 20080407
  8. PASIL [Concomitant]
     Dates: start: 20080326, end: 20080404
  9. SODIUM CHLORIDE 0.9% [Concomitant]
     Dates: start: 20080326, end: 20080404
  10. GLUCOSE [Concomitant]
     Dates: start: 20080328, end: 20080404
  11. AMINO ACID INJ [Concomitant]
     Dates: start: 20080328, end: 20080404
  12. FLUMARIN [Concomitant]
     Dates: start: 20080405, end: 20080409

REACTIONS (1)
  - MYOCARDIAL INFARCTION [None]
